FAERS Safety Report 15512434 (Version 1)
Quarter: 2018Q4

REPORT INFORMATION
  Report Type: Spontaneous
  Country: US (occurrence: US)
  Receive Date: 20181011
  Receipt Date: 20181011
  Transmission Date: 20190205
  Serious: Yes (Hospitalization)
  Sender: FDA-Public Use
  Company Number: None

PATIENT
  Age: 71 Year
  Sex: Female
  Weight: 75.9 kg

DRUGS (1)
  1. AZACITIDINE. [Suspect]
     Active Substance: AZACITIDINE
     Dosage: ?          OTHER FREQUENCY:CYCLE=28 DAYS;?
     Dates: end: 20180918

REACTIONS (7)
  - Transfusion [None]
  - Pleural effusion [None]
  - Pulmonary oedema [None]
  - Hypertensive crisis [None]
  - Acute pulmonary oedema [None]
  - Post procedural complication [None]
  - Pneumothorax [None]

NARRATIVE: CASE EVENT DATE: 20181004
